FAERS Safety Report 6422611-4 (Version None)
Quarter: 2009Q4

REPORT INFORMATION
  Report Type: 
  Country: None (occurrence: None)
  Receive Date: 20091102
  Receipt Date: 20090930
  Transmission Date: 20100525
  Serious: No
  Sender: FDA-Public Use
  Company Number: US-BAYER-200935465NA

PATIENT
  Age: 70 Year
  Sex: Male

DRUGS (2)
  1. LEVITRA [Suspect]
     Indication: ERECTILE DYSFUNCTION
     Dates: start: 19990101
  2. FLOMAX [Concomitant]
     Indication: PROSTATIC DISORDER

REACTIONS (1)
  - MICTURITION URGENCY [None]
